FAERS Safety Report 12249833 (Version 5)
Quarter: 2016Q3

REPORT INFORMATION
  Report Type: Spontaneous
  Country: FR (occurrence: FR)
  Receive Date: 20160408
  Receipt Date: 20160706
  Transmission Date: 20161109
  Serious: Yes (Hospitalization)
  Sender: FDA-Public Use
  Company Number: FR-TEVA-648713ISR

PATIENT
  Age: 73 Year
  Sex: Female

DRUGS (11)
  1. OROCAL VITAMINE D3 [Suspect]
     Active Substance: CALCIUM CARBONATE\CHOLECALCIFEROL
     Dosage: LONG-STANDING TREATMENT
     Route: 048
  2. PIASCLEDINE [Concomitant]
     Active Substance: AVOCADO OIL\SOYBEAN OIL
     Dosage: DURING SUMMER PERIOD ONLY
  3. KOTOR ARTICULATIONS [Concomitant]
     Indication: NUTRITIONAL SUPPLEMENTATION
     Dates: start: 201510, end: 20160314
  4. CITALOPRAM [Suspect]
     Active Substance: CITALOPRAM HYDROBROMIDE
     Dosage: 10 MILLIGRAM DAILY; LONG-STANDING TREATMENT
     Route: 048
     Dates: end: 20160321
  5. ESBERIVEN FORT [Concomitant]
     Active Substance: MELILOTUS OFFICINALIS TOP\RUTIN
     Dosage: DURING SUMMER PERIOD ONLY
  6. PERFOVITOL [Concomitant]
     Indication: NUTRITIONAL SUPPLEMENTATION
     Dates: start: 201510, end: 20160314
  7. PROBIODIET [Concomitant]
     Indication: NUTRITIONAL SUPPLEMENTATION
     Dates: start: 201510, end: 20160314
  8. EFFERALGAN [Suspect]
     Active Substance: ACETAMINOPHEN
     Indication: PAIN
     Dosage: PUNCTUAL INTAKES
     Route: 048
     Dates: end: 201603
  9. COTAREG 160 MG/12.5 MG [Suspect]
     Active Substance: HYDROCHLOROTHIAZIDE\VALSARTAN
     Indication: HYPERTENSION
     Dosage: 1 DOSAGE FORMS DAILY; HYDROCHLOROTHIAZIDE 12.5 MG + VALSARTAN 160 MG. LONG-STANDING TREATMENT
     Route: 048
  10. SOTALOL 80 MG [Suspect]
     Active Substance: SOTALOL
     Indication: HYPERTENSION
     Dosage: 80 MILLIGRAM DAILY; LONG-STANDING TREATMENT
     Route: 048
  11. CRESTOR [Suspect]
     Active Substance: ROSUVASTATIN CALCIUM
     Indication: DYSLIPIDAEMIA
     Dosage: 5 MILLIGRAM DAILY; LONG-STANDING TREATMENT
     Route: 048
     Dates: end: 20160314

REACTIONS (2)
  - Hepatitis [Recovered/Resolved]
  - Hepatocellular injury [Recovered/Resolved]

NARRATIVE: CASE EVENT DATE: 201603
